FAERS Safety Report 17375379 (Version 1)
Quarter: 2020Q1

REPORT INFORMATION
  Report Type: Spontaneous
  Country: US (occurrence: US)
  Receive Date: 20200206
  Receipt Date: 20200206
  Transmission Date: 20200409
  Serious: No
  Sender: FDA-Public Use
  Company Number: US-CIPLA LTD.-2019US07232

PATIENT

DRUGS (11)
  1. LYRICA [Concomitant]
     Active Substance: PREGABALIN
     Dosage: 165 MILLIGRAM EXTENDED RELEASE TABLET, QD, AFTER EVENING MEAL
     Route: 048
  2. VITAMIN D3 [Concomitant]
     Active Substance: CHOLECALCIFEROL
     Indication: PRODUCT USED FOR UNKNOWN INDICATION
     Dosage: 5000 INTERNATIONAL UNIT, QD (STRENGTH: 1000 UNIT)
     Route: 048
  3. IBUPROFEN. [Concomitant]
     Active Substance: IBUPROFEN
     Indication: PRODUCT USED FOR UNKNOWN INDICATION
     Dosage: 800 MILLIGRAM, BID (AS NECESSARY)
     Route: 048
  4. PREGABALIN. [Suspect]
     Active Substance: PREGABALIN
     Indication: PRODUCT USED FOR UNKNOWN INDICATION
     Dosage: UNK
     Route: 065
  5. ALLEGRA [Concomitant]
     Active Substance: FEXOFENADINE HYDROCHLORIDE
     Indication: PRODUCT USED FOR UNKNOWN INDICATION
     Dosage: 180 MILLIGRAM, QD (1 BY MOUTH EVERY DAY)
     Route: 048
  6. GABA [GAMMA-AMINOBUTYRIC ACID] [Concomitant]
     Indication: PRODUCT USED FOR UNKNOWN INDICATION
     Dosage: 750 MILLIGRAM, QD (HS)
     Route: 048
  7. LYRICA [Concomitant]
     Active Substance: PREGABALIN
     Indication: PRODUCT USED FOR UNKNOWN INDICATION
     Dosage: 75 MILLIGRAM, BID (CAPSULE, STRENGTH: 75 MG)
     Route: 048
  8. PREVACID [Concomitant]
     Active Substance: LANSOPRAZOLE
     Indication: PRODUCT USED FOR UNKNOWN INDICATION
     Dosage: 30 MILLIGRAM, QD (2DF)
     Route: 048
  9. CALCIUM + MAGNESIUM [Concomitant]
     Active Substance: CALCIUM\MAGNESIUM
     Indication: PRODUCT USED FOR UNKNOWN INDICATION
     Dosage: 500-250 MILLIGRAM, QD (HS)
     Route: 048
  10. TYSABRI [Concomitant]
     Active Substance: NATALIZUMAB
     Indication: PRODUCT USED FOR UNKNOWN INDICATION
     Dosage: 300 MG/15ML, CONCENTRATE, IV INFUSION EVERY 36 DAYS
     Route: 042
  11. BACLOFEN. [Concomitant]
     Active Substance: BACLOFEN
     Indication: PRODUCT USED FOR UNKNOWN INDICATION
     Dosage: 10 MILLIGRAM, 2 QHS
     Route: 048

REACTIONS (7)
  - Feeling abnormal [Unknown]
  - Disorientation [Unknown]
  - Nausea [Unknown]
  - Impaired driving ability [Unknown]
  - Mood altered [Unknown]
  - Product substitution issue [Unknown]
  - Dizziness [Recovering/Resolving]
